FAERS Safety Report 6375224-7 (Version None)
Quarter: 2009Q3

REPORT INFORMATION
  Report Type: 
  Country: None (occurrence: None)
  Receive Date: 20090921
  Receipt Date: 20090921
  Transmission Date: 20100115
  Serious: Yes (Life-Threatening, Other)
  Sender: FDA-Public Use
  Company Number: None

PATIENT
  Age: 31 Year
  Sex: Male
  Weight: 63.5036 kg

DRUGS (1)
  1. BUPROPION HCL [Suspect]
     Indication: DEPRESSED MOOD
     Dosage: 150XL ONCE A DAY PO
     Route: 048
     Dates: start: 20080402, end: 20090402

REACTIONS (5)
  - CRYING [None]
  - MENTAL DISORDER [None]
  - PRODUCT SUBSTITUTION ISSUE [None]
  - SELF-INJURIOUS IDEATION [None]
  - THINKING ABNORMAL [None]
